FAERS Safety Report 25959304 (Version 3)
Quarter: 2025Q4

REPORT INFORMATION
  Report Type: Spontaneous
  Country: EU (occurrence: EU)
  Receive Date: 20251025
  Receipt Date: 20251125
  Transmission Date: 20260117
  Serious: Yes (Other)
  Sender: ALEXION PHARMACEUTICALS
  Company Number: None

PATIENT
  Age: 43 Year
  Sex: Female

DRUGS (1)
  1. TICAGRELOR [Suspect]
     Active Substance: TICAGRELOR
     Indication: Arterial stenosis
     Dosage: 90 MILLIGRAM, QD
     Dates: start: 20250729, end: 20250815

REACTIONS (1)
  - Jessner^s lymphocytic infiltration [Recovering/Resolving]

NARRATIVE: CASE EVENT DATE: 20250815
